FAERS Safety Report 12467752 (Version 3)
Quarter: 2016Q3

REPORT INFORMATION
  Report Type: Spontaneous
  Country: DE (occurrence: DE)
  Receive Date: 20160615
  Receipt Date: 20160816
  Transmission Date: 20161109
  Serious: Yes (Life-Threatening, Hospitalization, Other)
  Sender: FDA-Public Use
  Company Number: DE-MYLANLABS-2016M1022972

PATIENT

DRUGS (2)
  1. BUDESONID [Concomitant]
     Active Substance: BUDESONIDE
     Indication: PRODUCT USED FOR UNKNOWN INDICATION
     Dosage: BUDENOSID NICHT REDUZIERBAR, NICHT AUSSCHLEICHBAR
  2. AZATHIOPRINE. [Suspect]
     Active Substance: AZATHIOPRINE
     Indication: CROHN^S DISEASE
     Dosage: 125 MG, UNK
     Route: 048
     Dates: start: 20160422, end: 20160509

REACTIONS (6)
  - General physical condition abnormal [Unknown]
  - Cardiogenic shock [Unknown]
  - Pyrexia [Unknown]
  - Vertigo [Unknown]
  - Myocarditis [Recovered/Resolved]
  - Palpitations [Unknown]

NARRATIVE: CASE EVENT DATE: 20160507
